FAERS Safety Report 5514792-1 (Version None)
Quarter: 2007Q4

REPORT INFORMATION
  Report Type: 
  Country: None (occurrence: None)
  Receive Date: 20071109
  Receipt Date: 20070703
  Transmission Date: 20080405
  Serious: Yes (Other)
  Sender: FDA-Public Use
  Company Number: 2007VX001793

PATIENT
  Age: 57 Year
  Sex: Female
  Weight: 63.5036 kg

DRUGS (7)
  1. INTERFERON ALFACON-1 [Suspect]
     Indication: HEPATITIS C
     Dosage: 15 UG; QD; SC
     Route: 058
     Dates: start: 20070701, end: 20071001
  2. INTERFERON ALFACON-1 [Suspect]
  3. INTERFERON ALFACON-1 [Suspect]
  4. INTERFERON ALFACON-1 [Suspect]
  5. RIBAVIRIN [Suspect]
     Indication: HEPATITIS C
     Dosage: 600 MG; QAM; PO, 400 MG; QPM; PO
     Route: 048
     Dates: start: 20070701
  6. RIBAVIRIN [Suspect]
     Indication: HEPATITIS C
     Dosage: 600 MG; QAM; PO, 400 MG; QPM; PO
     Route: 048
     Dates: start: 20070701
  7. RESTORIL [Concomitant]

REACTIONS (20)
  - ALOPECIA [None]
  - BLOOD PRESSURE INCREASED [None]
  - BURNING SENSATION [None]
  - CONDITION AGGRAVATED [None]
  - CONSTIPATION [None]
  - DECREASED APPETITE [None]
  - DIARRHOEA [None]
  - DYSPNOEA [None]
  - FATIGUE [None]
  - FEELING ABNORMAL [None]
  - INFLUENZA LIKE ILLNESS [None]
  - INJECTION SITE DISCOLOURATION [None]
  - INJECTION SITE MASS [None]
  - INSOMNIA [None]
  - PAIN [None]
  - RED BLOOD CELL COUNT DECREASED [None]
  - SENSORY DISTURBANCE [None]
  - SOMNOLENCE [None]
  - WEIGHT DECREASED [None]
  - WHITE BLOOD CELL COUNT DECREASED [None]
